FAERS Safety Report 9606964 (Version 4)
Quarter: 2014Q2

REPORT INFORMATION
  Report Type: Report from Study
  Country: FR (occurrence: FR)
  Receive Date: 20131008
  Receipt Date: 20140422
  Transmission Date: 20141212
  Serious: Yes (Hospitalization)
  Sender: FDA-Public Use
  Company Number: FR-ROCHE-1222852

PATIENT
  Age: 70 Year
  Sex: Male
  Weight: 66 kg

DRUGS (1)
  1. TOCILIZUMAB [Suspect]
     Indication: RHEUMATOID ARTHRITIS
     Dosage: LAST INFUSION 24/APR/2013
     Route: 065
     Dates: start: 20130222, end: 20130504

REACTIONS (3)
  - Rheumatoid arthritis [Not Recovered/Not Resolved]
  - Bursitis [Recovered/Resolved]
  - Varicose ulceration [Recovered/Resolved]
